FAERS Safety Report 12690918 (Version 1)
Quarter: 2016Q3

REPORT INFORMATION
  Report Type: Report from Study
  Country: US (occurrence: US)
  Receive Date: 20160826
  Receipt Date: 20160826
  Transmission Date: 20161109
  Serious: Yes (Other)
  Sender: FDA-Public Use
  Company Number: US-ABBVIE-16K-163-1704567-00

PATIENT
  Sex: Male
  Weight: 76.27 kg

DRUGS (2)
  1. ASPIRIN. [Concomitant]
     Active Substance: ASPIRIN
     Indication: PRODUCT USED FOR UNKNOWN INDICATION
  2. HUMIRA [Suspect]
     Active Substance: ADALIMUMAB
     Indication: ANKYLOSING SPONDYLITIS
     Route: 058
     Dates: start: 201511, end: 20160601

REACTIONS (8)
  - Fall [Recovering/Resolving]
  - Weight decreased [Recovering/Resolving]
  - Peripheral nerve injury [Not Recovered/Not Resolved]
  - Tongue fungal infection [Recovered/Resolved]
  - Psoriasis [Unknown]
  - Fungal pharyngitis [Recovered/Resolved]
  - Hypophagia [Recovering/Resolving]
  - Impaired self-care [Recovering/Resolving]
